FAERS Safety Report 10903707 (Version 1)
Quarter: 2015Q1

REPORT INFORMATION
  Report Type: Spontaneous
  Country: US (occurrence: None)
  Receive Date: 20150306
  Receipt Date: 20150306
  Transmission Date: 20150721
  Serious: Yes (Death)
  Sender: FDA-Public Use
  Company Number: CC400248620

PATIENT
  Age: 78 Year
  Sex: Female

DRUGS (3)
  1. CEFTRIAXONE. [Suspect]
     Active Substance: CEFTRIAXONE
     Indication: HIP SURGERY
     Route: 042
  2. CEFTRIAXONE. [Suspect]
     Active Substance: CEFTRIAXONE
     Indication: POSTOPERATIVE CARE
     Route: 042
  3. CEFAZOLIN [Concomitant]
     Active Substance: CEFAZOLIN

REACTIONS (4)
  - Unevaluable event [None]
  - Product contamination physical [None]
  - Drug administration error [None]
  - Gangrene [None]

NARRATIVE: CASE EVENT DATE: 20130405
